FAERS Safety Report 10404391 (Version 1)
Quarter: 2014Q3

REPORT INFORMATION
  Report Type: Report from Study
  Country: MX (occurrence: MX)
  Receive Date: 20140823
  Receipt Date: 20140823
  Transmission Date: 20150326
  Serious: Yes (Other)
  Sender: FDA-Public Use
  Company Number: PHHY2014MX105114

PATIENT
  Age: 56 Year
  Sex: Female

DRUGS (4)
  1. TEGRETOL [Suspect]
     Active Substance: CARBAMAZEPINE
     Indication: NEURALGIA
     Dosage: 0.5 DF (HALF TABLET), TID (IN THE MORNING, IN THE EVENING AND AT NIGHT)
     Route: 048
     Dates: start: 201211
  2. TEGRETOL [Suspect]
     Active Substance: CARBAMAZEPINE
     Dosage: 0.5 DF (HALF TABLET), QHS
     Route: 048
     Dates: start: 201305
  3. TEGRETOL [Suspect]
     Active Substance: CARBAMAZEPINE
     Dosage: UNK UKN (3/4 OR 1 TAB. IN THE MORNING AND ONE TAB. AT NIGHT), PRN
     Route: 048
  4. DABEX [Concomitant]
     Indication: DIABETES MELLITUS
     Dosage: 1 DF, DAILY
     Dates: start: 201008

REACTIONS (6)
  - Tooth loss [Not Recovered/Not Resolved]
  - Haematoma [Recovered/Resolved]
  - Nerve compression [Recovered/Resolved]
  - Somnolence [Recovered/Resolved]
  - Accident [Recovered/Resolved]
  - Wrong technique in drug usage process [Not Recovered/Not Resolved]

NARRATIVE: CASE EVENT DATE: 201211
